FAERS Safety Report 9255251 (Version 1)
Quarter: 2013Q2

REPORT INFORMATION
  Report Type: Spontaneous
  Country: CN (occurrence: CN)
  Receive Date: 20130425
  Receipt Date: 20130425
  Transmission Date: 20140414
  Serious: Yes (Death)
  Sender: FDA-Public Use
  Company Number: CN-WATSON-2013-06784

PATIENT
  Age: 33 Year
  Sex: Female

DRUGS (2)
  1. MEPERIDINE HYDROCHLORIDE (WATSON LABORATORIES) [Suspect]
     Indication: HOMICIDE
     Dosage: 100 ML, SINGLE, INJECTION, 60 ML OF 50 % GLUCOSE
     Route: 042
  2. MERCURY [Concomitant]
     Indication: HOMICIDE
     Dosage: 3 ML, SINGLE, INJECTION, 40 ML OF 50 % GLUCOSE SOLUTION
     Route: 042

REACTIONS (4)
  - Toxicity to various agents [Fatal]
  - Depressed level of consciousness [Fatal]
  - Unresponsive to stimuli [Fatal]
  - Intentional drug misuse [Fatal]
